FAERS Safety Report 5465623-X (Version None)
Quarter: 2007Q3

REPORT INFORMATION
  Report Type: 
  Country: None (occurrence: None)
  Receive Date: 20070924
  Receipt Date: 20070911
  Transmission Date: 20080115
  Serious: Yes (Hospitalization, Other)
  Sender: FDA-Public Use
  Company Number: US-AMGEN-QUU242893

PATIENT
  Sex: Female

DRUGS (1)
  1. ENBREL [Suspect]
     Indication: RHEUMATOID ARTHRITIS
     Route: 058
     Dates: start: 20040201

REACTIONS (7)
  - CHEST PAIN [None]
  - DYSPNOEA [None]
  - FULL BLOOD COUNT DECREASED [None]
  - KNEE ARTHROPLASTY [None]
  - LUNG ABSCESS [None]
  - PNEUMONIA [None]
  - RHEUMATOID ARTHRITIS [None]
